FAERS Safety Report 8113443-X (Version None)
Quarter: 2012Q1

REPORT INFORMATION
  Report Type: 
  Country: None (occurrence: None)
  Receive Date: 20120131
  Receipt Date: 20120119
  Transmission Date: 20120608
  Serious: Yes (Hospitalization)
  Sender: FDA-Public Use
  Company Number: TCI2011A06359

PATIENT
  Age: 63 Year
  Sex: Male

DRUGS (11)
  1. CONIEL (BENIDIPINE HYDROCHLORIDE) [Concomitant]
  2. NORVASC [Concomitant]
  3. FAMOTIDINE [Concomitant]
  4. TICLOPIDINE HCL [Concomitant]
  5. CRESTOR [Concomitant]
  6. ASPIRIN [Concomitant]
  7. MICARDIS [Concomitant]
  8. NOVORAPID 30 MIX (INSULIN ASPART) [Concomitant]
  9. ACTOS [Suspect]
     Indication: DIABETES MELLITUS
     Dosage: 15 MG (15 MG, 1 IN 1 D) PER ORAL
     Route: 048
     Dates: start: 20061101, end: 20111024
  10. CADEMESIN (DOXAZOSIN MESILATE) [Concomitant]
  11. METFORMIN HCL [Concomitant]

REACTIONS (1)
  - BLADDER CANCER STAGE I, WITHOUT CANCER IN SITU [None]
